FAERS Safety Report 17724238 (Version 1)
Quarter: 2020Q2

REPORT INFORMATION
  Report Type: Spontaneous
  Country: US (occurrence: US)
  Receive Date: 20200428
  Receipt Date: 20200428
  Transmission Date: 20200714
  Serious: No
  Sender: FDA-Public Use
  Company Number: None

PATIENT
  Age: 42 Year
  Sex: Female

DRUGS (1)
  1. SPRYCEL [Suspect]
     Active Substance: DASATINIB
     Route: 048
     Dates: start: 201501

REACTIONS (3)
  - Biopsy skin [None]
  - Condition aggravated [None]
  - Acute febrile neutrophilic dermatosis [None]

NARRATIVE: CASE EVENT DATE: 20200428
